FAERS Safety Report 5898358-X (Version None)
Quarter: 2008Q3

REPORT INFORMATION
  Report Type: 
  Country: None (occurrence: None)
  Receive Date: 20080925
  Receipt Date: 20071018
  Transmission Date: 20090109
  Serious: No
  Sender: FDA-Public Use
  Company Number: A0685313A

PATIENT
  Age: 37 Year
  Sex: Female
  Weight: 76.4 kg

DRUGS (2)
  1. WELLBUTRIN XL [Suspect]
     Indication: DEPRESSION
     Dosage: 300MG PER DAY
     Route: 048
  2. SYNTHROID [Concomitant]

REACTIONS (3)
  - DRUG INEFFECTIVE [None]
  - SWELLING FACE [None]
  - URTICARIA [None]
